FAERS Safety Report 24844357 (Version 1)
Quarter: 2025Q1

REPORT INFORMATION
  Report Type: Spontaneous
  Country: US (occurrence: None)
  Receive Date: 20250114
  Receipt Date: 20250114
  Transmission Date: 20250409
  Serious: Yes (Death, Life-Threatening, Hospitalization)
  Sender: FDA-CTU
  Company Number: None

PATIENT
  Age: 93 Year
  Sex: Male

DRUGS (3)
  1. PEMBROLIZUMAB [Suspect]
     Active Substance: PEMBROLIZUMAB
     Indication: Pleural effusion
     Route: 042
     Dates: start: 20241015, end: 20241106
  2. PEMBROLIZUMAB [Suspect]
     Active Substance: PEMBROLIZUMAB
     Indication: Interstitial lung disease
  3. PEMBROLIZUMAB [Suspect]
     Active Substance: PEMBROLIZUMAB
     Indication: Skin toxicity

REACTIONS (6)
  - Diarrhoea [None]
  - Interstitial lung disease [None]
  - Pleural effusion [None]
  - Pruritus [None]
  - Weight decreased [None]
  - Mucocutaneous toxicity [None]

NARRATIVE: CASE EVENT DATE: 20241106
